FAERS Safety Report 18415531 (Version 1)
Quarter: 2020Q4

REPORT INFORMATION
  Report Type: Spontaneous
  Country: GR (occurrence: GR)
  Receive Date: 20201022
  Receipt Date: 20201022
  Transmission Date: 20210114
  Serious: Yes (Death)
  Sender: FDA-Public Use
  Company Number: GR-PFIZER INC-2020409830

PATIENT

DRUGS (1)
  1. LORVIQUA [Suspect]
     Active Substance: LORLATINIB
     Dosage: 100 MG

REACTIONS (1)
  - Death [Fatal]
